FAERS Safety Report 18626216 (Version 2)
Quarter: 2020Q4

REPORT INFORMATION
  Report Type: Report from Study
  Country: None (occurrence: DE)
  Receive Date: 20201216
  Receipt Date: 20201219
  Transmission Date: 20210114
  Serious: Yes (Life-Threatening, Hospitalization)
  Sender: FDA-Public Use
  Company Number: DE-ABBVIE-20K-062-3689230-00

PATIENT
  Age: 55 Year
  Sex: Female

DRUGS (4)
  1. CORTISON [Suspect]
     Active Substance: CORTISONE ACETATE
     Indication: PRODUCT USED FOR UNKNOWN INDICATION
     Route: 065
  2. VIGANTOL [Concomitant]
     Indication: BONE DISORDER
     Route: 048
     Dates: start: 2017
  3. RINVOQ [Suspect]
     Active Substance: UPADACITINIB
     Indication: RHEUMATOID ARTHRITIS
     Route: 048
     Dates: start: 20200611, end: 20200703
  4. CALCIUM [Concomitant]
     Active Substance: CALCIUM
     Indication: BONE DISORDER
     Route: 048
     Dates: start: 2017

REACTIONS (10)
  - Condition aggravated [Recovered/Resolved]
  - Memory impairment [Unknown]
  - Rheumatic disorder [Unknown]
  - Myocarditis [Recovered/Resolved]
  - Diarrhoea [Recovered/Resolved]
  - Sepsis [Recovered/Resolved]
  - Inflammation [Unknown]
  - Loss of consciousness [Recovered/Resolved]
  - Blood pressure abnormal [Unknown]
  - Nausea [Recovered/Resolved]

NARRATIVE: CASE EVENT DATE: 2020
